FAERS Safety Report 8052747-6 (Version None)
Quarter: 2012Q1

REPORT INFORMATION
  Report Type: 
  Country: None (occurrence: None)
  Receive Date: 20120118
  Receipt Date: 20120110
  Transmission Date: 20120608
  Serious: Yes (Congenital Anomaly)
  Sender: FDA-Public Use
  Company Number: JP-EISAI INC-E2090-01944-SPO-JP

PATIENT

DRUGS (6)
  1. ZONISAMIDE [Suspect]
     Route: 064
     Dates: end: 20110101
  2. ZONISAMIDE [Suspect]
     Route: 048
     Dates: start: 20110101, end: 20110201
  3. ZONISAMIDE [Suspect]
     Route: 048
     Dates: start: 20110201, end: 20110301
  4. ZONISAMIDE [Suspect]
     Route: 048
     Dates: start: 20110301, end: 20110101
  5. MYSTAN [Suspect]
     Dosage: 20 MG
     Route: 064
     Dates: start: 20110101, end: 20110201
  6. MOTILIUM [Concomitant]
     Dosage: 20 MG
     Dates: start: 20100801

REACTIONS (2)
  - POLYDACTYLY [None]
  - FOETAL EXPOSURE DURING PREGNANCY [None]
